FAERS Safety Report 5564660-4 (Version None)
Quarter: 2007Q4

REPORT INFORMATION
  Report Type: 
  Country: None (occurrence: None)
  Receive Date: 20071218
  Receipt Date: 20071212
  Transmission Date: 20080405
  Serious: Yes (Other)
  Sender: FDA-Public Use
  Company Number: US-ASTRAZENECA-2007UW13879

PATIENT
  Age: 37 Year
  Sex: Female
  Weight: 65.9 kg

DRUGS (1)
  1. SEROQUEL [Suspect]
     Indication: SLEEP DISORDER
     Route: 048
     Dates: start: 20040101, end: 20051101

REACTIONS (11)
  - ABDOMINAL PAIN [None]
  - ACUTE SINUSITIS [None]
  - ANEURYSM RUPTURED [None]
  - CONTUSION [None]
  - CROHN'S DISEASE [None]
  - HEADACHE [None]
  - INTESTINAL PERFORATION [None]
  - MUSCLE STRAIN [None]
  - PANCREATITIS CHRONIC [None]
  - TRAUMATIC BRAIN INJURY [None]
  - UPPER RESPIRATORY TRACT INFECTION [None]
